FAERS Safety Report 7659837-8 (Version None)
Quarter: 2011Q3

REPORT INFORMATION
  Report Type: 
  Country: None (occurrence: None)
  Receive Date: 20110805
  Receipt Date: 20110802
  Transmission Date: 20111222
  Serious: Yes (Death)
  Sender: FDA-Public Use
  Company Number: FR-JNJFOC-20110708964

PATIENT
  Sex: Female
  Weight: 48 kg

DRUGS (9)
  1. TERCIAN [Concomitant]
     Indication: CONFUSIONAL STATE
     Dosage: 5-5-15 DROPS
     Route: 065
  2. MORPHINE [Concomitant]
     Indication: PAIN
     Route: 037
  3. HALDOL [Suspect]
     Indication: NAUSEA
     Route: 042
     Dates: start: 20110716, end: 20110717
  4. PRIMPERAN TAB [Concomitant]
     Indication: NAUSEA
     Route: 042
  5. ESCITALOPRAM OXALATE [Concomitant]
     Indication: DEPRESSION
     Route: 048
  6. NAROPIN [Concomitant]
     Indication: PAIN
     Route: 037
  7. TERCIAN [Concomitant]
     Dosage: 5-5-15 DROPS
     Route: 065
     Dates: start: 20110720
  8. HALDOL [Suspect]
     Indication: NAUSEA
     Dosage: A HALF DOSE
     Route: 042
  9. PRIMPERAN TAB [Concomitant]
     Route: 042
     Dates: start: 20110720

REACTIONS (6)
  - DRUG PRESCRIBING ERROR [None]
  - PANCREATIC CARCINOMA METASTATIC [None]
  - OFF LABEL USE [None]
  - WRONG DRUG ADMINISTERED [None]
  - DRUG DISPENSING ERROR [None]
  - INCORRECT ROUTE OF DRUG ADMINISTRATION [None]
